FAERS Safety Report 9264212 (Version 3)
Quarter: 2013Q3

REPORT INFORMATION
  Report Type: Report from Study
  Country: NL (occurrence: NL)
  Receive Date: 20130430
  Receipt Date: 20130710
  Transmission Date: 20140515
  Serious: Yes (Life-Threatening, Hospitalization, Other)
  Sender: FDA-Public Use
  Company Number: NL-JNJFOC-20130212426

PATIENT
  Age: 64 Year
  Sex: Male
  Weight: 90 kg

DRUGS (21)
  1. CANAGLIFLOZIN [Suspect]
     Route: 048
  2. CANAGLIFLOZIN [Suspect]
     Indication: TYPE 2 DIABETES MELLITUS
     Route: 048
     Dates: start: 20100520, end: 20130210
  3. NOVOMIX [Concomitant]
     Indication: HYPERGLYCAEMIA
     Dates: start: 20120809
  4. NOVOMIX [Concomitant]
     Indication: HYPERGLYCAEMIA
     Dates: start: 20111118, end: 20120808
  5. NOVOMIX [Concomitant]
     Indication: HYPERGLYCAEMIA
     Dates: start: 20110616, end: 20111117
  6. NOVOMIX [Concomitant]
     Indication: HYPERGLYCAEMIA
     Dates: start: 20110218, end: 20110615
  7. NOVOMIX [Concomitant]
     Indication: HYPERGLYCAEMIA
     Dates: start: 20080404, end: 20110217
  8. METFORMIN [Concomitant]
     Indication: HYPERGLYCAEMIA
     Dates: start: 20111118
  9. METFORMIN [Concomitant]
     Indication: HYPERGLYCAEMIA
     Dates: start: 20080404, end: 20111117
  10. METOPROLOL [Concomitant]
     Indication: HYPERTENSION
     Route: 048
  11. PANTOZOL [Concomitant]
     Route: 048
  12. ATORVASTATIN [Concomitant]
     Indication: HYPERCHOLESTEROLAEMIA
     Route: 048
  13. CARBASALATE CALCIUM [Concomitant]
     Route: 048
  14. EPLERENONE [Concomitant]
     Route: 048
  15. AMOXICILLIN [Concomitant]
     Indication: ADVERSE EVENT
     Route: 048
  16. PERINDOPRIL [Concomitant]
     Indication: HYPERTENSION
     Route: 048
  17. SIMVASTATIN [Concomitant]
     Indication: HYPERCHOLESTEROLAEMIA
     Route: 048
  18. PARACETAMOL [Concomitant]
     Indication: ADVERSE EVENT
     Route: 048
  19. CODEINE [Concomitant]
     Indication: ADVERSE EVENT
     Route: 048
  20. FLU VACCINE [Concomitant]
     Indication: ANTIVIRAL PROPHYLAXIS
     Route: 058
  21. PANTOPRAZOLE [Concomitant]
     Route: 048

REACTIONS (1)
  - Adenocarcinoma of colon [Unknown]
